FAERS Safety Report 4932810-6 (Version None)
Quarter: 2006Q1

REPORT INFORMATION
  Report Type: 
  Country: None (occurrence: None)
  Receive Date: 20060306
  Receipt Date: 20060221
  Transmission Date: 20060701
  Serious: Yes (Congenital Anomaly)
  Sender: FDA-Public Use
  Company Number: FR-ABBOTT-06P-056-0325643-00

PATIENT
  Age: 2 Month
  Sex: Female

DRUGS (1)
  1. DEPAKENE [Suspect]
     Indication: DRUG EXPOSURE DURING PREGNANCY

REACTIONS (7)
  - CYANOSIS [None]
  - FACIAL DYSMORPHISM [None]
  - GASTROOESOPHAGEAL REFLUX DISEASE [None]
  - HYPOTONIA [None]
  - MALAISE [None]
  - MYOPIA [None]
  - PSYCHOMOTOR RETARDATION [None]
